FAERS Safety Report 24855718 (Version 3)
Quarter: 2025Q1

REPORT INFORMATION
  Report Type: Spontaneous
  Country: UA (occurrence: UA)
  Receive Date: 20250117
  Receipt Date: 20250214
  Transmission Date: 20250409
  Serious: Yes (Other)
  Sender: NOVARTIS
  Company Number: UA-002147023-NVSC2025UA007952

PATIENT
  Sex: Female

DRUGS (36)
  1. CYCLOSPORINE [Suspect]
     Active Substance: CYCLOSPORINE
     Indication: Autoimmune hepatitis
     Route: 065
     Dates: start: 2014
  2. CYCLOSPORINE [Suspect]
     Active Substance: CYCLOSPORINE
     Indication: Overlap syndrome
     Route: 065
     Dates: end: 2016
  3. CYCLOSPORINE [Suspect]
     Active Substance: CYCLOSPORINE
     Indication: Immunosuppressant drug therapy
  4. PREDNISOLONE [Concomitant]
     Active Substance: PREDNISOLONE
     Indication: Autoimmune hepatitis
     Route: 065
     Dates: start: 20120815
  5. PREDNISOLONE [Concomitant]
     Active Substance: PREDNISOLONE
     Indication: Overlap syndrome
     Route: 065
     Dates: start: 20120926
  6. PREDNISOLONE [Concomitant]
     Active Substance: PREDNISOLONE
     Indication: Immunosuppressant drug therapy
     Route: 065
     Dates: start: 20130316
  7. PREDNISOLONE [Concomitant]
     Active Substance: PREDNISOLONE
     Route: 065
     Dates: start: 20130424
  8. PREDNISOLONE [Concomitant]
     Active Substance: PREDNISOLONE
     Route: 065
  9. PREDNISOLONE [Concomitant]
     Active Substance: PREDNISOLONE
     Route: 065
     Dates: start: 20140727, end: 20140730
  10. PREDNISOLONE [Concomitant]
     Active Substance: PREDNISOLONE
     Route: 065
     Dates: start: 20150723, end: 20150827
  11. PREDNISOLONE [Concomitant]
     Active Substance: PREDNISOLONE
     Route: 065
     Dates: start: 20150928, end: 20151203
  12. PREDNISOLONE [Concomitant]
     Active Substance: PREDNISOLONE
     Route: 065
     Dates: start: 20160111
  13. PREDNISOLONE [Concomitant]
     Active Substance: PREDNISOLONE
     Route: 065
     Dates: start: 20160216, end: 20160303
  14. PREDNISOLONE [Concomitant]
     Active Substance: PREDNISOLONE
     Route: 065
     Dates: start: 20160527
  15. PREDNISOLONE [Concomitant]
     Active Substance: PREDNISOLONE
     Route: 065
     Dates: start: 20160614
  16. PREDNISOLONE [Concomitant]
     Active Substance: PREDNISOLONE
     Route: 065
     Dates: start: 20160622
  17. PREDNISOLONE [Concomitant]
     Active Substance: PREDNISOLONE
     Route: 065
     Dates: start: 20160701
  18. PREDNISOLONE [Concomitant]
     Active Substance: PREDNISOLONE
     Route: 065
  19. PREDNISOLONE [Concomitant]
     Active Substance: PREDNISOLONE
     Route: 065
     Dates: start: 20160721
  20. PREDNISOLONE [Concomitant]
     Active Substance: PREDNISOLONE
     Route: 065
     Dates: start: 20160805
  21. PREDNISOLONE [Concomitant]
     Active Substance: PREDNISOLONE
     Route: 065
     Dates: start: 20160923
  22. PREDNISOLONE [Concomitant]
     Active Substance: PREDNISOLONE
     Route: 065
     Dates: start: 20161024, end: 20170303
  23. MEDROL [Concomitant]
     Active Substance: METHYLPREDNISOLONE
     Indication: Autoimmune hepatitis
     Route: 065
     Dates: start: 20150305, end: 20150504
  24. MEDROL [Concomitant]
     Active Substance: METHYLPREDNISOLONE
     Indication: Overlap syndrome
     Dosage: 1 MG, QD
     Route: 065
     Dates: start: 20150505, end: 2015
  25. MEDROL [Concomitant]
     Active Substance: METHYLPREDNISOLONE
     Indication: Immunosuppressant drug therapy
     Dosage: 3.75 MG, QD
     Route: 065
     Dates: start: 20150723, end: 20150927
  26. MEDROL [Concomitant]
     Active Substance: METHYLPREDNISOLONE
     Dosage: 2.5 MG, QD
     Route: 065
     Dates: start: 20150928, end: 20160110
  27. MEDROL [Concomitant]
     Active Substance: METHYLPREDNISOLONE
     Dosage: 2 MG, QD
     Route: 065
     Dates: start: 20160111, end: 2016
  28. MEDROL [Concomitant]
     Active Substance: METHYLPREDNISOLONE
     Dosage: 7.5 MG, QD
     Route: 065
     Dates: start: 20160216, end: 20160526
  29. MEDROL [Concomitant]
     Active Substance: METHYLPREDNISOLONE
     Dosage: 12.5 MG, QD
     Route: 065
     Dates: start: 20160527
  30. URSODIOL [Concomitant]
     Active Substance: URSODIOL
     Indication: Product used for unknown indication
     Dosage: 750 MG, QD
     Route: 065
     Dates: start: 20150305
  31. URSODIOL [Concomitant]
     Active Substance: URSODIOL
     Dosage: 1000 MG, QD
     Route: 065
     Dates: start: 20150409, end: 2015
  32. URSODIOL [Concomitant]
     Active Substance: URSODIOL
     Dosage: 750 MG, QD
     Route: 065
     Dates: start: 20150723, end: 2015
  33. URSODIOL [Concomitant]
     Active Substance: URSODIOL
     Dosage: 1000 MG, QD
     Route: 065
     Dates: start: 20151203, end: 20160601
  34. URSODIOL [Concomitant]
     Active Substance: URSODIOL
     Dosage: 750 MG, QD
     Route: 065
     Dates: start: 20160602
  35. URSODIOL [Concomitant]
     Active Substance: URSODIOL
     Dosage: 750 MG, QD
     Route: 065
     Dates: start: 2019
  36. BUDESONIDE [Concomitant]
     Active Substance: BUDESONIDE
     Indication: Product used for unknown indication
     Dosage: 9 MG, QD
     Route: 065
     Dates: start: 20160602

REACTIONS (3)
  - Alanine aminotransferase increased [Recovering/Resolving]
  - Gamma-glutamyltransferase increased [Recovering/Resolving]
  - Off label use [Unknown]

NARRATIVE: CASE EVENT DATE: 20160101
